FAERS Safety Report 5565059-7 (Version None)
Quarter: 2007Q4

REPORT INFORMATION
  Report Type: 
  Country: None (occurrence: None)
  Receive Date: 20071212
  Receipt Date: 20071206
  Transmission Date: 20080405
  Serious: Yes (Death)
  Sender: FDA-Public Use
  Company Number: E2020-01970-SPO-JP

PATIENT
  Age: 78 Year
  Sex: Female
  Weight: 50 kg

DRUGS (9)
  1. ARICEPT [Suspect]
     Indication: DEMENTIA ALZHEIMER'S TYPE
     Dosage: 3 MG, 1 IN1 D, ORAL
     Route: 048
     Dates: start: 20071021, end: 20071027
  2. RISEDRONATE SODIUM [Concomitant]
  3. ALCENOL (ATENOLOL) [Concomitant]
  4. BLOPRESS (CANDESARTAN CILEXETIL) [Concomitant]
  5. INHIBACE [Concomitant]
  6. MOBIC [Concomitant]
  7. MUCOSTA (REBAMIPIDE) [Concomitant]
  8. DEPAS (ETIZOLAM) [Concomitant]
  9. BUP-4 (PROPIVERINE HYDROCHLORIDE) [Concomitant]

REACTIONS (2)
  - CARDIO-RESPIRATORY ARREST [None]
  - SUDDEN DEATH [None]
